FAERS Safety Report 8530602-2 (Version None)
Quarter: 2012Q3

REPORT INFORMATION
  Report Type: 
  Country: None (occurrence: None)
  Receive Date: 20120723
  Receipt Date: 20120713
  Transmission Date: 20120928
  Serious: Yes (Death, Hospitalization, Other)
  Sender: FDA-Public Use
  Company Number: US-MPIJNJ-2011-06484

PATIENT
  Sex: Male
  Weight: 84.354 kg

DRUGS (1)
  1. VELCADE [Suspect]
     Indication: MULTIPLE MYELOMA
     Dosage: 1.3 MG/M2, CYCLIC
     Route: 042
     Dates: start: 20110211, end: 20110715

REACTIONS (5)
  - METABOLIC ENCEPHALOPATHY [None]
  - VOMITING [None]
  - DUODENITIS [None]
  - ANAEMIA [None]
  - OESOPHAGITIS [None]
